FAERS Safety Report 4488835-0 (Version None)
Quarter: 2004Q4

REPORT INFORMATION
  Report Type: 
  Country: None (occurrence: None)
  Receive Date: 20041029
  Receipt Date: 20041021
  Transmission Date: 20050328
  Serious: Yes (Hospitalization, Other)
  Sender: FDA-Public Use
  Company Number: DE-MERCK-0410DEU00659

PATIENT
  Sex: Female

DRUGS (2)
  1. VIOXX [Suspect]
     Route: 048
     Dates: start: 20000322, end: 20000701
  2. VIOXX [Suspect]
     Route: 048
     Dates: start: 20000701, end: 20020506

REACTIONS (3)
  - CARDIAC DISORDER [None]
  - GASTRIC ULCER HAEMORRHAGE [None]
  - THERAPEUTIC RESPONSE DECREASED [None]
